FAERS Safety Report 23292750 (Version 2)
Quarter: 2025Q1

REPORT INFORMATION
  Report Type: Spontaneous
  Country: US (occurrence: US)
  Receive Date: 20231213
  Receipt Date: 20250110
  Transmission Date: 20250409
  Serious: No
  Sender: SANOFI AVENTIS
  Company Number: US-SA-SAC20231211000376

PATIENT
  Age: 57 Year
  Sex: Female

DRUGS (1)
  1. DUPIXENT [Suspect]
     Active Substance: DUPILUMAB
     Indication: Asthma
     Dosage: 300 MG QOW 300MG/2ML
     Route: 058
     Dates: start: 20240122

REACTIONS (3)
  - Cough [Unknown]
  - Dyspnoea [Unknown]
  - Therapeutic response shortened [Unknown]
